FAERS Safety Report 9807371 (Version 1)
Quarter: 2014Q1

REPORT INFORMATION
  Report Type: Spontaneous
  Country: US (occurrence: US)
  Receive Date: 20140110
  Receipt Date: 20140110
  Transmission Date: 20141002
  Serious: Yes (Hospitalization)
  Sender: FDA-Public Use
  Company Number: US-ROCHE-1331618

PATIENT
  Age: 37 Year
  Sex: Female

DRUGS (7)
  1. XOLAIR [Suspect]
     Indication: ASTHMA
     Route: 058
  2. ZOCOR [Concomitant]
     Route: 065
  3. BYSTOLIC [Concomitant]
     Route: 065
  4. MICARDIS [Concomitant]
     Route: 065
  5. CINNAMON [Concomitant]
     Route: 065
  6. HUMALOG [Concomitant]
     Dosage: 25/75
     Route: 065
  7. PERCOCET [Concomitant]

REACTIONS (1)
  - Exostosis [Unknown]
